FAERS Safety Report 8270890-3 (Version None)
Quarter: 2012Q2

REPORT INFORMATION
  Report Type: 
  Country: None (occurrence: None)
  Receive Date: 20120410
  Receipt Date: 20120410
  Transmission Date: 20120825
  Serious: Yes (Hospitalization)
  Sender: FDA-Public Use
  Company Number: None

PATIENT
  Sex: Female
  Weight: 70.76 kg

DRUGS (12)
  1. HYDRALAZINE HCL [Concomitant]
  2. COQ10 [Concomitant]
  3. LOVAZA [Concomitant]
  4. CARVEDILOL [Concomitant]
  5. OMEPRAZOLE [Concomitant]
  6. CHOLECALCIFEROL [Concomitant]
  7. PRAVASTATIN [Concomitant]
  8. LOSARTAN POTASSIUM [Concomitant]
  9. MIRALAX [Concomitant]
  10. AMLODIPINE [Concomitant]
  11. ASPIRIN [Concomitant]
  12. XARELTO [Suspect]
     Indication: ATRIAL FIBRILLATION
     Route: 048
     Dates: start: 20120321, end: 20120406

REACTIONS (6)
  - HYPOTENSION [None]
  - ANAEMIA [None]
  - TINNITUS [None]
  - DIZZINESS [None]
  - OCCULT BLOOD POSITIVE [None]
  - FATIGUE [None]
